FAERS Safety Report 12015660 (Version 2)
Quarter: 2017Q1

REPORT INFORMATION
  Report Type: Spontaneous
  Country: US (occurrence: US)
  Receive Date: 20160205
  Receipt Date: 20170208
  Transmission Date: 20170428
  Serious: No
  Sender: FDA-Public Use
  Company Number: US-AMGEN-USASP2015085231

PATIENT
  Age: 23 Year
  Sex: Female
  Weight: 86.7 kg

DRUGS (7)
  1. DOXORUBICIN [Concomitant]
     Active Substance: DOXORUBICIN
     Indication: BREAST CANCER FEMALE
     Dosage: 60 MG/M2 (113 MG), UNK
     Route: 042
     Dates: start: 20150707
  2. CYCLOPHOSPHAMIDE. [Concomitant]
     Active Substance: CYCLOPHOSPHAMIDE
     Indication: BREAST CANCER FEMALE
     Dosage: 600 MG/M2 (1134 MG), UNK
     Route: 042
     Dates: start: 20150707
  3. CYCLOPHOSPHAMIDE. [Concomitant]
     Active Substance: CYCLOPHOSPHAMIDE
     Indication: OESTROGEN RECEPTOR ASSAY POSITIVE
  4. NEULASTA [Suspect]
     Active Substance: PEGFILGRASTIM
     Indication: PROPHYLAXIS
     Dosage: 6 MG, 24 HOURS POST CHEMO EVERY 21 DAYS
     Route: 058
  5. 5 FU [Concomitant]
     Active Substance: FLUOROURACIL
     Indication: BREAST CANCER FEMALE
     Dosage: 600 MG/M2 (1125 MG), UNK
     Route: 042
     Dates: start: 20150707
  6. 5 FU [Concomitant]
     Active Substance: FLUOROURACIL
     Indication: OESTROGEN RECEPTOR ASSAY POSITIVE
  7. DOXORUBICIN [Concomitant]
     Active Substance: DOXORUBICIN
     Indication: OESTROGEN RECEPTOR ASSAY POSITIVE

REACTIONS (2)
  - Device issue [Unknown]
  - Pregnancy [Not Recovered/Not Resolved]

NARRATIVE: CASE EVENT DATE: 20150818
